FAERS Safety Report 6899749-0 (Version None)
Quarter: 2010Q3

REPORT INFORMATION
  Report Type: 
  Country: None (occurrence: None)
  Receive Date: 20100729
  Receipt Date: 20100716
  Transmission Date: 20110219
  Serious: Yes (Other)
  Sender: FDA-Public Use
  Company Number: 7011334

PATIENT
  Age: 46 Year
  Sex: Female

DRUGS (1)
  1. REBIF [Suspect]
     Indication: MULTIPLE SCLEROSIS
     Dosage: 44 MCG, 3 IN 1 WK, SUBCUTANEOUS
     Route: 058
     Dates: start: 20090625

REACTIONS (5)
  - INJECTION SITE ERYTHEMA [None]
  - INJECTION SITE EXFOLIATION [None]
  - INJECTION SITE HAEMATOMA [None]
  - OPTIC NEURITIS [None]
  - WRONG TECHNIQUE IN DRUG USAGE PROCESS [None]
